FAERS Safety Report 14259089 (Version 1)
Quarter: 2017Q4

REPORT INFORMATION
  Report Type: Spontaneous
  Country: US (occurrence: US)
  Receive Date: 20171207
  Receipt Date: 20171207
  Transmission Date: 20180321
  Serious: Yes (Other)
  Sender: FDA-Public Use
  Company Number: None

PATIENT
  Age: 21 Year
  Sex: Male
  Weight: 47.2 kg

DRUGS (3)
  1. NIVOLUMAB [Suspect]
     Active Substance: NIVOLUMAB
     Indication: RENAL CELL CARCINOMA
     Dosage: ?          OTHER FREQUENCY:2 WEEK;?
     Route: 042
     Dates: start: 20170927, end: 20170927
  2. NIVOLUMAB [Suspect]
     Active Substance: NIVOLUMAB
     Indication: HEREDITARY LEIOMYOMATOSIS RENAL CELL CARCINOMA
     Dosage: ?          OTHER FREQUENCY:2 WEEK;?
     Route: 042
     Dates: start: 20170927, end: 20170927
  3. TRAMADOL. [Concomitant]
     Active Substance: TRAMADOL

REACTIONS (8)
  - Drug hypersensitivity [None]
  - Therapy cessation [None]
  - Dyspnoea [None]
  - Chest discomfort [None]
  - Cardio-respiratory arrest [None]
  - Flushing [None]
  - Infusion related reaction [None]
  - Drug intolerance [None]
